FAERS Safety Report 14856785 (Version 1)
Quarter: 2018Q2

REPORT INFORMATION
  Report Type: Spontaneous
  Country: US (occurrence: US)
  Receive Date: 20180507
  Receipt Date: 20180507
  Transmission Date: 20180711
  Serious: No
  Sender: FDA-Public Use
  Company Number: US-ROCHE-2003266

PATIENT
  Sex: Male
  Weight: 69.92 kg

DRUGS (3)
  1. ESBRIET [Suspect]
     Active Substance: PIRFENIDONE
     Indication: PULMONARY FIBROSIS
     Dosage: ONE PILL 3 TIMES A DAY ;ONGOING: NO
     Route: 065
     Dates: start: 2017
  2. ESBRIET [Suspect]
     Active Substance: PIRFENIDONE
     Dosage: 3 PILLS 3 TIMES A DAY ;ONGOING: YES
     Route: 065
     Dates: start: 2017
  3. ESBRIET [Suspect]
     Active Substance: PIRFENIDONE
     Dosage: 2 PILLS THREE TIMES A DAY ;ONGOING: NO
     Route: 065
     Dates: start: 2017

REACTIONS (6)
  - Decreased appetite [Not Recovered/Not Resolved]
  - Gastric disorder [Not Recovered/Not Resolved]
  - Fatigue [Not Recovered/Not Resolved]
  - Chromaturia [Not Recovered/Not Resolved]
  - Weight decreased [Not Recovered/Not Resolved]
  - Nausea [Not Recovered/Not Resolved]

NARRATIVE: CASE EVENT DATE: 2017
